FAERS Safety Report 21128362 (Version 1)
Quarter: 2022Q3

REPORT INFORMATION
  Report Type: Spontaneous
  Country: FR (occurrence: FR)
  Receive Date: 20220725
  Receipt Date: 20220725
  Transmission Date: 20221027
  Serious: Yes (Other)
  Sender: FDA-Public Use
  Company Number: None

PATIENT
  Age: 45 Year
  Sex: Female

DRUGS (1)
  1. TOPIRAMATE [Suspect]
     Active Substance: TOPIRAMATE
     Indication: Gait disturbance
     Route: 048
     Dates: start: 20220315, end: 20220323

REACTIONS (1)
  - Accommodation disorder [Recovering/Resolving]

NARRATIVE: CASE EVENT DATE: 20220323
